FAERS Safety Report 17517939 (Version 1)
Quarter: 2020Q1

REPORT INFORMATION
  Report Type: Spontaneous
  Country: CH (occurrence: CH)
  Receive Date: 20200309
  Receipt Date: 20200309
  Transmission Date: 20200409
  Serious: Yes (Hospitalization, Other)
  Sender: FDA-Public Use
  Company Number: CH-GLAXOSMITHKLINE-CH2020042336

PATIENT
  Age: 86 Year
  Sex: Male

DRUGS (23)
  1. CIPROFLOXACINE [Suspect]
     Active Substance: CIPROFLOXACIN
     Indication: COLITIS
     Dosage: 500 MG
     Dates: start: 20200212, end: 20200216
  2. MADOPAR [Suspect]
     Active Substance: BENSERAZIDE HYDROCHLORIDE\LEVODOPA
     Dosage: 31.25 MG
     Dates: start: 20200115
  3. DAFALGAN [Concomitant]
     Active Substance: ACETAMINOPHEN
     Dosage: AS NECESSARY
  4. FLAGYL [Suspect]
     Active Substance: METRONIDAZOLE\METRONIDAZOLE HYDROCHLORIDE
     Indication: COLITIS
     Dates: start: 20200210, end: 20200216
  5. AMLODIPINE [Concomitant]
     Active Substance: AMLODIPINE BESYLATE
  6. BELOC ZOK [Concomitant]
     Active Substance: METOPROLOL SUCCINATE
     Dates: start: 20191110
  7. ASPIRIN CARDIO [Concomitant]
     Active Substance: ASPIRIN
     Dates: end: 20200211
  8. CLEXANE [Suspect]
     Active Substance: ENOXAPARIN SODIUM
     Dosage: 40 MG
     Dates: start: 20200208, end: 20200219
  9. IPRAMOL [Concomitant]
     Active Substance: ALBUTEROL SULFATE\IPRATROPIUM BROMIDE
     Dosage: AS NECESSARY
  10. LAXOBERON [Concomitant]
     Active Substance: SODIUM PICOSULFATE
     Dosage: AS NECESSARY
  11. DUODART [Suspect]
     Active Substance: DUTASTERIDE\TAMSULOSIN
     Dosage: 1 DF
     Dates: start: 20200109
  12. CALCIMAGON D3 [Concomitant]
     Active Substance: CALCIUM\CHOLECALCIFEROL
  13. COVERSUM N [Suspect]
     Active Substance: PERINDOPRIL
     Indication: MYOCARDIAL ISCHAEMIA
     Dosage: 2.5 MG
     Dates: start: 20200216, end: 20200218
  14. CLOPIDOGREL [Suspect]
     Active Substance: CLOPIDOGREL BISULFATE
     Dosage: 75 MG
     Dates: start: 20200212, end: 20200219
  15. TORASEMIDE [Concomitant]
     Active Substance: TORSEMIDE
     Dates: start: 20200224
  16. NEXIUM MUPS [Concomitant]
     Active Substance: ESOMEPRAZOLE
  17. EUTHYROX [Concomitant]
     Active Substance: LEVOTHYROXINE SODIUM
  18. CEFTRIAXONE. [Suspect]
     Active Substance: CEFTRIAXONE
     Indication: COLITIS
     Dosage: 2 G
     Dates: start: 20200208, end: 20200211
  19. TAMIFLU [Suspect]
     Active Substance: OSELTAMIVIR PHOSPHATE
     Indication: INFLUENZA
     Dosage: 500 MG
     Dates: start: 20200212, end: 20200219
  20. PRAVASTATINE [Concomitant]
     Active Substance: PRAVASTATIN
  21. TRAJENTA [Concomitant]
     Active Substance: LINAGLIPTIN
  22. DISTRANEURIN [Concomitant]
     Active Substance: CLOMETHIAZOLE
     Dosage: AS NECESSARY
  23. MOVICOL [Concomitant]
     Active Substance: POLYETHYLENE GLYCOL 3350\POTASSIUM CHLORIDE\SODIUM BICARBONATE\SODIUM CHLORIDE
     Dosage: AS NECESSARY

REACTIONS (1)
  - Thrombocytopenia [Not Recovered/Not Resolved]

NARRATIVE: CASE EVENT DATE: 20200217
